FAERS Safety Report 5853741-3 (Version None)
Quarter: 2008Q3

REPORT INFORMATION
  Report Type: 
  Country: None (occurrence: None)
  Receive Date: 20080822
  Receipt Date: 20080815
  Transmission Date: 20090109
  Serious: Yes (Other)
  Sender: FDA-Public Use
  Company Number: US-ASTRAZENECA-2008UW16705

PATIENT
  Age: 45 Year
  Sex: Female

DRUGS (2)
  1. SYMBICORT [Suspect]
     Dosage: 160/4.5 TWO INHALATIONS TWO TIMES PER DAY
     Route: 055
  2. ALBUTEROL [Concomitant]

REACTIONS (1)
  - DYSPNOEA [None]
